FAERS Safety Report 17467427 (Version 2)
Quarter: 2020Q2

REPORT INFORMATION
  Report Type: Spontaneous
  Country: US (occurrence: US)
  Receive Date: 20200227
  Receipt Date: 20200402
  Transmission Date: 20200713
  Serious: No
  Sender: FDA-Public Use
  Company Number: US-PFIZER INC-2020085428

PATIENT
  Age: 86 Year
  Sex: Female
  Weight: 77.1 kg

DRUGS (3)
  1. FENTANYL CITRATE. [Suspect]
     Active Substance: FENTANYL CITRATE
     Indication: LIGHT ANAESTHESIA
     Dosage: 50 UG, UNK
     Dates: start: 20200224
  2. GABAPENTIN. [Concomitant]
     Active Substance: GABAPENTIN
     Indication: PAIN IN EXTREMITY
     Dosage: 200 MG, 2X/DAY
     Route: 048
     Dates: start: 20190530
  3. MIDAZOLAM. [Suspect]
     Active Substance: MIDAZOLAM
     Indication: LIGHT ANAESTHESIA
     Dosage: 2 MG, UNK
     Dates: start: 20200224

REACTIONS (1)
  - Drug ineffective [Not Recovered/Not Resolved]

NARRATIVE: CASE EVENT DATE: 20200224
